FAERS Safety Report 4513610-8 (Version None)
Quarter: 2004Q4

REPORT INFORMATION
  Report Type: 
  Country: None (occurrence: None)
  Receive Date: 20041130
  Receipt Date: 20040812
  Transmission Date: 20050328
  Serious: No
  Sender: FDA-Public Use
  Company Number: US-GLAXOSMITHKLINE-A0521975A

PATIENT
  Age: 39 Year
  Sex: Female

DRUGS (3)
  1. WELLBUTRIN XL [Suspect]
     Dosage: 150MG PER DAY
     Route: 048
     Dates: start: 20040801
  2. FLONASE [Concomitant]
  3. ALLEGRA-D [Concomitant]

REACTIONS (1)
  - URTICARIA [None]
